FAERS Safety Report 5505316-3 (Version None)
Quarter: 2007Q4

REPORT INFORMATION
  Report Type: 
  Country: None (occurrence: None)
  Receive Date: 20071102
  Receipt Date: 20071023
  Transmission Date: 20080405
  Serious: Yes (Other)
  Sender: FDA-Public Use
  Company Number: B0487863A

PATIENT
  Age: 44 Year
  Sex: Female
  Weight: 54 kg

DRUGS (4)
  1. LAPATINIB [Suspect]
     Dosage: 1250MG PER DAY
     Route: 048
     Dates: start: 20070525, end: 20070807
  2. CAPECITABINE [Suspect]
     Dosage: 3000MG PER DAY
     Route: 048
     Dates: start: 20070525, end: 20070807
  3. MORPHINE [Concomitant]
     Indication: PAIN
     Dosage: 30MG PER DAY
     Route: 058
     Dates: start: 20070501
  4. EMEND [Concomitant]
     Indication: NAUSEA
     Dosage: 80MG PER DAY
     Route: 048
     Dates: start: 20070706

REACTIONS (4)
  - CARDIAC TAMPONADE [None]
  - DYSPNOEA [None]
  - OXYGEN SATURATION DECREASED [None]
  - PERICARDIAL EFFUSION [None]
